FAERS Safety Report 23234735 (Version 1)
Quarter: 2023Q4

REPORT INFORMATION
  Report Type: Spontaneous
  Country: US (occurrence: None)
  Receive Date: 20231128
  Receipt Date: 20231128
  Transmission Date: 20240109
  Serious: No
  Sender: FDA-Public Use
  Company Number: 2023A257745

PATIENT
  Age: 82 Year
  Sex: Female

DRUGS (1)
  1. CRESTOR [Suspect]
     Active Substance: ROSUVASTATIN CALCIUM

REACTIONS (6)
  - Drug tolerance decreased [Unknown]
  - C-reactive protein increased [Unknown]
  - Cardiac failure congestive [Unknown]
  - Oedema [Unknown]
  - Osteoarthritis [Unknown]
  - Hypertension [Unknown]
